FAERS Safety Report 8829215 (Version 2)
Quarter: 2013Q1

REPORT INFORMATION
  Report Type: Spontaneous
  Country: GB (occurrence: GB)
  Receive Date: 20121008
  Receipt Date: 20130117
  Transmission Date: 20140127
  Serious: Yes (Congenital Anomaly)
  Sender: FDA-Public Use
  Company Number: PHHY2012GB085125

PATIENT
  Age: 1 Hour
  Sex: Male
  Weight: 2.89 kg

DRUGS (3)
  1. VENLAFAXINE [Suspect]
     Route: 064
  2. VENLAFAXINE [Suspect]
     Dosage: (MATERNAL DOSE: 75 MG)
     Route: 064
  3. FOLIC ACID [Concomitant]
     Route: 064

REACTIONS (2)
  - Syndactyly [Not Recovered/Not Resolved]
  - Hypospadias [Not Recovered/Not Resolved]
